FAERS Safety Report 23545460 (Version 2)
Quarter: 2024Q2

REPORT INFORMATION
  Report Type: Spontaneous
  Country: US (occurrence: US)
  Receive Date: 20240220
  Receipt Date: 20240627
  Transmission Date: 20240715
  Serious: Yes (Life-Threatening, Hospitalization, Other)
  Sender: FDA-Public Use
  Company Number: US-PFIZER INC-PV202400023620

PATIENT
  Age: 53 Year
  Sex: Female

DRUGS (11)
  1. IBRANCE [Suspect]
     Active Substance: PALBOCICLIB
     Dosage: 125 MG FOR 21 DAYS ON 7 DAYS OFF
     Route: 048
     Dates: start: 20231017
  2. DESMOPRESSIN [Concomitant]
     Active Substance: DESMOPRESSIN
  3. HYDROCORTISONE [Concomitant]
     Active Substance: HYDROCORTISONE\HYDROCORTISONE ACETATE
  4. KEPPRA [Concomitant]
     Active Substance: LEVETIRACETAM
  5. MIDODRINE [Concomitant]
     Active Substance: MIDODRINE
  6. PRAVASTATIN [Concomitant]
     Active Substance: PRAVASTATIN
  7. ALENDRONATE [Concomitant]
     Active Substance: ALENDRONATE SODIUM
  8. CHOLECALCIFEROL [Concomitant]
     Active Substance: CHOLECALCIFEROL
  9. DESMOPRESSIN [Concomitant]
     Active Substance: DESMOPRESSIN
     Dosage: SOLUTION
  10. LEVOTHYROXINE [Concomitant]
     Active Substance: LEVOTHYROXINE\LEVOTHYROXINE SODIUM
  11. POTASSIUM CHLORIDE [Concomitant]
     Active Substance: POTASSIUM CHLORIDE

REACTIONS (3)
  - Seizure [Recovered/Resolved]
  - Food poisoning [Recovered/Resolved]
  - Hyponatraemia [Unknown]
